FAERS Safety Report 7564336-8 (Version None)
Quarter: 2011Q2

REPORT INFORMATION
  Report Type: 
  Country: None (occurrence: None)
  Receive Date: 20110622
  Receipt Date: 20110609
  Transmission Date: 20111010
  Serious: Yes (Hospitalization, Other)
  Sender: FDA-Public Use
  Company Number: PHHY2011NL23541

PATIENT
  Sex: Male

DRUGS (7)
  1. BICALUTAMIDE [Concomitant]
     Indication: PROSTATIC SPECIFIC ANTIGEN INCREASED
  2. ZOMETA [Suspect]
     Dosage: 4 MG/ 5 ML PER 28 DAY
     Route: 042
     Dates: start: 20110418
  3. ZOMETA [Suspect]
     Indication: PROSTATE CANCER METASTATIC
     Dosage: 4 MG/ 5 ML PER 28 DAY
     Route: 042
     Dates: start: 20090421
  4. ZOMETA [Suspect]
     Dosage: 4 MG/ 5 ML PER 28 DAY
     Route: 042
     Dates: start: 20110218
  5. ZOMETA [Suspect]
     Dosage: 4 MG/ 5 ML PER 28 DAY
     Route: 042
     Dates: start: 20110321
  6. LUCRIEN [Concomitant]
  7. ZOLADEX [Concomitant]

REACTIONS (10)
  - BACK PAIN [None]
  - PROSTATIC SPECIFIC ANTIGEN INCREASED [None]
  - METASTASES TO BONE [None]
  - RENAL IMPAIRMENT [None]
  - BACTERIAL TEST POSITIVE [None]
  - WEIGHT DECREASED [None]
  - BONE PAIN [None]
  - FATIGUE [None]
  - RENAL DISORDER [None]
  - URINARY TRACT INFECTION [None]
